FAERS Safety Report 17981640 (Version 1)
Quarter: 2020Q3

REPORT INFORMATION
  Report Type: Spontaneous
  Country: DE (occurrence: DE)
  Receive Date: 20200706
  Receipt Date: 20200706
  Transmission Date: 20201103
  Serious: Yes (Hospitalization)
  Sender: FDA-Public Use
  Company Number: DE-ROCHE-2636424

PATIENT
  Sex: Male

DRUGS (11)
  1. CYCLOPHOSPHAMIDE. [Suspect]
     Active Substance: CYCLOPHOSPHAMIDE
     Indication: PRODUCT USED FOR UNKNOWN INDICATION
     Dosage: OVER 1 HOUR ON DAY 2
     Route: 064
  2. CYTARABINE. [Suspect]
     Active Substance: CYTARABINE
     Indication: PRODUCT USED FOR UNKNOWN INDICATION
     Dosage: OVER 1 HOUR EVERY 12 HOURS ON DAYS 2?6 PRENATAL PHASE
     Route: 064
  3. CYTARABINE. [Suspect]
     Active Substance: CYTARABINE
     Dosage: ON DAYS 2 AND 6 PRENATAL PHASE
     Route: 037
  4. MESNA. [Suspect]
     Active Substance: MESNA
     Indication: PRODUCT USED FOR UNKNOWN INDICATION
     Dosage: AT 0, 4, AND 8 HOURS AFTER CPA DAY 2 PRENATAL PHASE
     Route: 064
  5. ETOPOSIDE. [Suspect]
     Active Substance: ETOPOSIDE
     Indication: PRODUCT USED FOR UNKNOWN INDICATION
     Dosage: OVER 1 HOUR ON DAYS 2?4 PRENATAL PHASE
     Route: 064
  6. VINCRISTINE [Suspect]
     Active Substance: VINCRISTINE
     Indication: PRODUCT USED FOR UNKNOWN INDICATION
     Dosage: ON DAY 2 PRENATAL PHASE
     Route: 064
  7. DOXORUBICIN [Suspect]
     Active Substance: DOXORUBICIN
     Indication: PRODUCT USED FOR UNKNOWN INDICATION
     Dosage: OVER 30 MINUTES ON DAY 2
     Route: 064
  8. PREDNISOLONE. [Suspect]
     Active Substance: PREDNISOLONE
     Indication: PRODUCT USED FOR UNKNOWN INDICATION
     Dosage: ON DAYS 2?5 PRENATAL PHASE
     Route: 064
  9. DEXAMETHASONE. [Suspect]
     Active Substance: DEXAMETHASONE
     Indication: BURKITT^S LYMPHOMA STAGE IV
     Dosage: ON DAYS 2 AND 6 PRENATAL PHASE
     Route: 064
  10. RITUXIMAB. [Suspect]
     Active Substance: RITUXIMAB
     Indication: PRODUCT USED FOR UNKNOWN INDICATION
     Dosage: OVER 3 HOURS ON DAY 1 PRENATAL PHASE
     Route: 064
  11. FILGRASTIM [Suspect]
     Active Substance: FILGRASTIM
     Indication: PRODUCT USED FOR UNKNOWN INDICATION
     Dosage: ON DAYS 6?11 PRENATAL PHASE
     Route: 064

REACTIONS (7)
  - Low birth weight baby [Unknown]
  - Foetal exposure during pregnancy [Unknown]
  - Bacterial infection [Unknown]
  - B-lymphocyte count decreased [Not Recovered/Not Resolved]
  - Foetal growth restriction [Unknown]
  - Small for dates baby [Unknown]
  - Hypogammaglobulinaemia [Unknown]
